FAERS Safety Report 16854636 (Version 1)
Quarter: 2019Q3

REPORT INFORMATION
  Report Type: Spontaneous
  Country: US (occurrence: US)
  Receive Date: 20190926
  Receipt Date: 20190926
  Transmission Date: 20191005
  Serious: No
  Sender: FDA-Public Use
  Company Number: US-BION-007823

PATIENT

DRUGS (1)
  1. LOPERAMIDE UNKNOWN PRODUCT [Suspect]
     Active Substance: LOPERAMIDE
     Indication: PRODUCT USED FOR UNKNOWN INDICATION
     Dosage: STRENGTH: 2 MG?TWO SOFTGELS

REACTIONS (4)
  - Product physical issue [Unknown]
  - Nausea [Unknown]
  - Oral discomfort [Unknown]
  - Product taste abnormal [Unknown]
